FAERS Safety Report 7066102-9 (Version None)
Quarter: 2010Q4

REPORT INFORMATION
  Report Type: 
  Country: None (occurrence: None)
  Receive Date: 20101027
  Receipt Date: 20100716
  Transmission Date: 20110411
  Serious: Yes (Other)
  Sender: FDA-Public Use
  Company Number: HQWYE295121JUL04

PATIENT
  Sex: Female
  Weight: 68.1 kg

DRUGS (5)
  1. PREMPRO [Suspect]
     Indication: MENOPAUSE
     Dosage: 0.625MG/2.5MG DAILY
     Route: 048
     Dates: start: 19960101, end: 20020101
  2. BETAXOLOL HCL [Concomitant]
  3. CELEBREX [Concomitant]
     Indication: ARTHRITIS
     Dosage: UNKNOWN
     Dates: start: 19980101
  4. ALPHAGAN [Concomitant]
     Indication: GLAUCOMA
     Dosage: UNKNOWN
     Dates: start: 19900101
  5. XALATAN [Concomitant]
     Indication: GLAUCOMA
     Dosage: UNKNOWN
     Dates: start: 19940101

REACTIONS (1)
  - BREAST CANCER [None]
